FAERS Safety Report 8578105-3 (Version None)
Quarter: 2012Q3

REPORT INFORMATION
  Report Type: 
  Country: None (occurrence: None)
  Receive Date: 20120808
  Receipt Date: 20120807
  Transmission Date: 20120928
  Serious: Yes (Death, Other)
  Sender: FDA-Public Use
  Company Number: PHHY2012NL046370

PATIENT
  Sex: Male
  Weight: 65 kg

DRUGS (5)
  1. OXYCODONE HCL [Concomitant]
     Dosage: 2 DF, UNK
  2. DEXAMETHASONE [Concomitant]
     Dosage: 4 DF, UNK
  3. ACETYLCYSTEINE [Concomitant]
     Dosage: 1 DF, UNK
  4. TEMAZEPAM [Concomitant]
     Dosage: 1 DF, DAILY
  5. ZOMETA [Suspect]
     Indication: METASTASES TO BONE
     Dosage: 4 MG / 100ML ONCE IN 28 DAYS
     Dates: start: 20120509

REACTIONS (7)
  - SEDATION [None]
  - METASTASES TO CENTRAL NERVOUS SYSTEM [None]
  - NEOPLASM PROGRESSION [None]
  - FATIGUE [None]
  - METASTASES TO LUNG [None]
  - METASTASES TO LIVER [None]
  - LEIOMYOSARCOMA METASTATIC [None]
